FAERS Safety Report 15374441 (Version 1)
Quarter: 2018Q3

REPORT INFORMATION
  Report Type: Spontaneous
  Country: JP (occurrence: JP)
  Receive Date: 20180912
  Receipt Date: 20180912
  Transmission Date: 20181010
  Serious: Yes (Other)
  Sender: FDA-Public Use
  Company Number: PHJP2018JP016140

PATIENT
  Age: 6 Year
  Sex: Male

DRUGS (3)
  1. IMATINIB [Suspect]
     Active Substance: IMATINIB
     Dosage: 175 MG/M2, UNK
     Route: 065
  2. IMATINIB [Suspect]
     Active Substance: IMATINIB
     Dosage: 350 MG/M2, QD
     Route: 048
  3. IMATINIB [Suspect]
     Active Substance: IMATINIB
     Indication: ACUTE LYMPHOCYTIC LEUKAEMIA
     Dosage: 350 MG/M2, QD
     Route: 048

REACTIONS (6)
  - C-reactive protein increased [Unknown]
  - Pain in extremity [Recovering/Resolving]
  - Gelatinous transformation of the bone marrow [Recovering/Resolving]
  - Abdominal pain [Recovering/Resolving]
  - Fibrin D dimer increased [Recovering/Resolving]
  - Osteonecrosis [Unknown]
